FAERS Safety Report 16071305 (Version 1)
Quarter: 2019Q1

REPORT INFORMATION
  Report Type: Spontaneous
  Country: US (occurrence: US)
  Receive Date: 20190314
  Receipt Date: 20190314
  Transmission Date: 20190418
  Serious: No
  Sender: FDA-Public Use
  Company Number: US-PFIZER INC-2019103268

PATIENT
  Age: 46 Year
  Sex: Female

DRUGS (3)
  1. METHOTREXATE. [Concomitant]
     Active Substance: METHOTREXATE
  2. XELJANZ XR [Suspect]
     Active Substance: TOFACITINIB CITRATE
     Dosage: 11 MG, DAILY (11 MG ONE TABLET EVERY DAY)
  3. ENBREL [Concomitant]
     Active Substance: ETANERCEPT

REACTIONS (4)
  - Herpes zoster [Unknown]
  - Pain [Unknown]
  - Joint swelling [Unknown]
  - Condition aggravated [Unknown]
